FAERS Safety Report 6767550-4 (Version None)
Quarter: 2010Q2

REPORT INFORMATION
  Report Type: 
  Country: None (occurrence: None)
  Receive Date: 20100614
  Receipt Date: 20100607
  Transmission Date: 20101027
  Serious: Yes (Congenital Anomaly)
  Sender: FDA-Public Use
  Company Number: US-BRISTOL-MYERS SQUIBB COMPANY-15142250

PATIENT
  Sex: Male
  Weight: 3 kg

DRUGS (9)
  1. ORENCIA [Suspect]
     Dosage: 1DF=1 SHOT
     Route: 064
  2. PRENATAL VITAMINS [Suspect]
     Dosage: 1DF=1 PILL
     Route: 064
  3. IRON [Suspect]
     Route: 064
  4. CARVEDILOL [Suspect]
     Route: 064
  5. INSULIN [Suspect]
     Dosage: 1DF=3 SHOT; ROUTE:INJECTED
     Route: 064
  6. TYLENOL [Suspect]
     Indication: RHEUMATOID ARTHRITIS
     Dosage: 2DF=2PILL; 09NOV2009 TO 28FEB2010 + 01MAR2010 TO 1MAY2010
     Route: 064
  7. PREDNISONE [Suspect]
     Route: 064
  8. TERBUTALINE SULFATE [Suspect]
     Route: 064
  9. INFLUENZA VIRUS VACCINE [Suspect]
     Route: 064

REACTIONS (2)
  - CLEFT LIP [None]
  - CLEFT PALATE [None]
